FAERS Safety Report 7586664-2 (Version None)
Quarter: 2011Q3

REPORT INFORMATION
  Report Type: 
  Country: None (occurrence: None)
  Receive Date: 20110701
  Receipt Date: 20110620
  Transmission Date: 20111222
  Serious: Yes (Other)
  Sender: FDA-Public Use
  Company Number: CA-ELI_LILLY_AND_COMPANY-CA201106006044

PATIENT
  Sex: Female

DRUGS (2)
  1. HUMATROPE [Suspect]
     Dosage: 0.6 MG, DAILY
  2. HUMATROPE [Suspect]
     Dosage: 0.6 MG, QD

REACTIONS (3)
  - INSULIN-LIKE GROWTH FACTOR DECREASED [None]
  - NEOPLASM [None]
  - DRUG INEFFECTIVE [None]
